FAERS Safety Report 18086022 (Version 1)
Quarter: 2020Q3

REPORT INFORMATION
  Report Type: Spontaneous
  Country: US (occurrence: US)
  Receive Date: 20200728
  Receipt Date: 20200728
  Transmission Date: 20201103
  Serious: No
  Sender: FDA-Public Use
  Company Number: None

PATIENT
  Age: 16 Year
  Sex: Male

DRUGS (3)
  1. BENZTROPINE 1MG INJ [Concomitant]
     Dates: start: 20200604, end: 20200604
  2. BENZTROPINE 1MG PO BID X3 DAYS [Concomitant]
     Dates: start: 20200604, end: 20200607
  3. HALOPERIDOL 5MG INJ [Suspect]
     Active Substance: HALOPERIDOL

REACTIONS (2)
  - Extrapyramidal disorder [None]
  - Dystonia [None]

NARRATIVE: CASE EVENT DATE: 20200604
